FAERS Safety Report 5823153-7 (Version None)
Quarter: 2008Q3

REPORT INFORMATION
  Report Type: 
  Country: None (occurrence: None)
  Receive Date: 20080725
  Receipt Date: 20080717
  Transmission Date: 20090109
  Serious: Yes (Other)
  Sender: FDA-Public Use
  Company Number: PHEH2008US03011

PATIENT
  Sex: Female
  Weight: 51.519 kg

DRUGS (2)
  1. FEMARA [Suspect]
     Indication: BREAST CANCER
     Dosage: 2.5 MG, QD
     Route: 048
     Dates: start: 20071101
  2. ASCRIPTIN - UNKNOWN FORMULA (NCH) [Concomitant]
     Dosage: UNK
     Route: 048

REACTIONS (2)
  - CATARACT OPERATION [None]
  - GLAUCOMA [None]
